FAERS Safety Report 18958225 (Version 1)
Quarter: 2021Q1

REPORT INFORMATION
  Report Type: Spontaneous
  Country: US (occurrence: US)
  Receive Date: 20210302
  Receipt Date: 20210302
  Transmission Date: 20210420
  Serious: Yes (Hospitalization)
  Sender: FDA-Public Use
  Company Number: None

PATIENT
  Age: 72 Year
  Sex: Male
  Weight: 100.75 kg

DRUGS (1)
  1. BAMLANIVIMAB. [Suspect]
     Active Substance: BAMLANIVIMAB
     Indication: COVID-19
     Dosage: ?          OTHER FREQUENCY:ONCE;?
     Route: 042
     Dates: start: 20210225, end: 20210225

REACTIONS (6)
  - Facial paralysis [None]
  - Dysarthria [None]
  - Muscular weakness [None]
  - Mobility decreased [None]
  - Pruritus [None]
  - Visual impairment [None]

NARRATIVE: CASE EVENT DATE: 20210225
